FAERS Safety Report 4953695-8 (Version None)
Quarter: 2006Q1

REPORT INFORMATION
  Report Type: 
  Country: None (occurrence: None)
  Receive Date: 20060324
  Receipt Date: 20050928
  Transmission Date: 20060701
  Serious: Yes (Other)
  Sender: FDA-Public Use
  Company Number: US-MERCK-0509USA04377

PATIENT
  Age: 53 Year
  Sex: Female
  Weight: 66 kg

DRUGS (21)
  1. VIOXX [Suspect]
     Indication: ARTHRALGIA
     Route: 048
     Dates: start: 20001001, end: 20040903
  2. PRILOSEC [Concomitant]
     Route: 065
  3. ZOLOFT [Concomitant]
     Route: 065
  4. VIOXX [Suspect]
     Route: 048
     Dates: start: 20001001, end: 20040903
  5. ZOCOR [Concomitant]
     Route: 065
  6. AMITRIPTYLINE HYDROCHLORIDE [Concomitant]
     Route: 065
  7. KLONOPIN [Concomitant]
     Route: 065
  8. HYDROCODONE BITARTRATE AND IBUPROFEN [Concomitant]
     Route: 065
  9. QUININE [Concomitant]
     Route: 065
  10. DITROPAN [Concomitant]
     Route: 065
  11. MIRAPEX [Concomitant]
     Route: 065
  12. LIPITOR [Concomitant]
     Route: 065
  13. FOSAMAX [Concomitant]
     Route: 065
  14. FLOVENT [Concomitant]
     Route: 065
  15. NASACORT [Concomitant]
     Route: 065
  16. AGYRAX (MECLIZINE HYDROCHLORIDE) [Concomitant]
     Route: 065
  17. ADVAIR DISKUS 100/50 [Concomitant]
     Route: 065
  18. CORTANE B [Concomitant]
     Route: 065
  19. NEXIUM [Concomitant]
     Route: 065
  20. GUIATUSS [Concomitant]
     Route: 065
  21. ZITHROMAX [Concomitant]
     Route: 065

REACTIONS (6)
  - AMNESIA [None]
  - CEREBROVASCULAR ACCIDENT [None]
  - CHRONIC OBSTRUCTIVE PULMONARY DISEASE [None]
  - DEAFNESS [None]
  - DIARRHOEA [None]
  - NASAL ULCER [None]
